FAERS Safety Report 6753490-3 (Version None)
Quarter: 2010Q2

REPORT INFORMATION
  Report Type: 
  Country: None (occurrence: None)
  Receive Date: 20100603
  Receipt Date: 20100528
  Transmission Date: 20101027
  Serious: Yes (Hospitalization)
  Sender: FDA-Public Use
  Company Number: US-SANOFI-AVENTIS-2010SA022824

PATIENT
  Age: 77 Year
  Sex: Male
  Weight: 90 kg

DRUGS (4)
  1. LANTUS [Suspect]
     Indication: TYPE 2 DIABETES MELLITUS
     Dosage: DOSE:12 UNIT(S)
     Route: 058
     Dates: start: 20070101
  2. OPTICLICK [Suspect]
     Dates: start: 20070101
  3. SIMVASTATIN [Concomitant]
  4. FUROSEMIDE [Concomitant]
     Indication: FLUID RETENTION

REACTIONS (2)
  - FLUID RETENTION [None]
  - MYOCARDIAL INFARCTION [None]
